FAERS Safety Report 13798325 (Version 1)
Quarter: 2017Q3

REPORT INFORMATION
  Report Type: Spontaneous
  Country: ZA (occurrence: ZA)
  Receive Date: 20170727
  Receipt Date: 20170727
  Transmission Date: 20171127
  Serious: Yes (Other)
  Sender: FDA-Public Use
  Company Number: PHHY2017ZA108830

PATIENT
  Sex: Female

DRUGS (1)
  1. SANDOSTATIN LAR DEPOT [Suspect]
     Active Substance: OCTREOTIDE ACETATE
     Indication: NEUROENDOCRINE TUMOUR OF THE LUNG
     Route: 065

REACTIONS (4)
  - Chest discomfort [Unknown]
  - Feeling abnormal [Unknown]
  - Joint swelling [Unknown]
  - Infarction [Unknown]

NARRATIVE: CASE EVENT DATE: 20170713
